FAERS Safety Report 9297812 (Version 1)
Quarter: 2013Q2

REPORT INFORMATION
  Report Type: Spontaneous
  Country: GB (occurrence: GB)
  Receive Date: 20130520
  Receipt Date: 20130520
  Transmission Date: 20140414
  Serious: Yes (Other)
  Sender: FDA-Public Use
  Company Number: GB-JNJFOC-20130506005

PATIENT
  Age: 81 Year
  Sex: Female
  Weight: 66 kg

DRUGS (8)
  1. XARELTO [Suspect]
     Indication: CEREBROVASCULAR ACCIDENT PROPHYLAXIS
     Route: 048
     Dates: start: 20130301, end: 20130415
  2. XARELTO [Suspect]
     Indication: ATRIAL FIBRILLATION
     Route: 048
     Dates: start: 20130301, end: 20130415
  3. SIMVASTATIN [Concomitant]
     Route: 065
  4. CANDESARTAN [Concomitant]
     Route: 065
  5. LEVOTHYROXINE [Concomitant]
     Route: 065
  6. BRINZOLAMIDE [Concomitant]
     Route: 065
  7. BENDROFLUMETHIAZIDE [Concomitant]
     Route: 065
  8. LATANOPROST [Concomitant]
     Route: 065

REACTIONS (2)
  - Decreased appetite [Unknown]
  - Nausea [Unknown]
